FAERS Safety Report 8691228 (Version 2)
Quarter: 2013Q1

REPORT INFORMATION
  Report Type: Report from Study
  Country: FR (occurrence: FR)
  Receive Date: 20120730
  Receipt Date: 20130207
  Transmission Date: 20140127
  Serious: Yes (Death, Hospitalization, Other)
  Sender: FDA-Public Use
  Company Number: PHHO2008FR09266

PATIENT
  Age: 55 Year
  Sex: Male

DRUGS (5)
  1. AFINITOR [Suspect]
     Indication: ACUTE MYELOID LEUKAEMIA
     Dosage: 10 MG, UNK
     Route: 048
     Dates: start: 20080313
  2. AFINITOR [Suspect]
     Dosage: 10 MG, UNK
     Route: 048
     Dates: start: 20080319
  3. DAUNORUBICIN [Suspect]
     Indication: ACUTE MYELOID LEUKAEMIA
     Dosage: UNK
     Route: 042
     Dates: start: 20080313, end: 20080315
  4. CYTOSINE ARABINOSIDE [Suspect]
     Indication: ACUTE MYELOID LEUKAEMIA
     Dosage: UNK
     Dates: start: 20080313, end: 20080319
  5. VANCOMYCIN [Concomitant]

REACTIONS (24)
  - Bone marrow failure [Unknown]
  - Multi-organ failure [Fatal]
  - Respiratory acidosis [Fatal]
  - Metabolic acidosis [Fatal]
  - Septic shock [Fatal]
  - Thrombocytopenia [Unknown]
  - Zygomycosis [Unknown]
  - Appendicitis [Unknown]
  - Enterovesical fistula [Unknown]
  - Mixed liver injury [Unknown]
  - Febrile infection [Unknown]
  - Sinus tachycardia [Unknown]
  - Haemoptysis [Unknown]
  - Pneumothorax [Unknown]
  - Asthenia [Unknown]
  - Confusional state [Unknown]
  - Pulmonary hypertension [Unknown]
  - Acute respiratory distress syndrome [Unknown]
  - Oliguria [Unknown]
  - Pyrexia [Unknown]
  - Intestinal obstruction [Unknown]
  - Lung disorder [Unknown]
  - Renal impairment [Recovering/Resolving]
  - Aspergillus infection [Unknown]
